FAERS Safety Report 6172216-8 (Version None)
Quarter: 2009Q2

REPORT INFORMATION
  Report Type: 
  Country: None (occurrence: None)
  Receive Date: 20090429
  Receipt Date: 20080304
  Transmission Date: 20091009
  Serious: No
  Sender: FDA-Public Use
  Company Number: A0713286A

PATIENT
  Age: 57 Year
  Sex: Female

DRUGS (9)
  1. ZOFRAN [Suspect]
     Indication: DRUG USE FOR UNKNOWN INDICATION
     Dosage: 4MG PER DAY
     Route: 048
     Dates: start: 20071201
  2. MORPHINE [Concomitant]
  3. MORPHINE SULFATE [Concomitant]
  4. SOMA [Concomitant]
  5. RANITIDINE [Concomitant]
  6. PROZAC [Concomitant]
  7. WATER PILL [Concomitant]
  8. FIORICET [Concomitant]
  9. ALPRAZOLAM [Concomitant]

REACTIONS (2)
  - DRUG INEFFECTIVE [None]
  - SWELLING [None]
